FAERS Safety Report 8396697 (Version 5)
Quarter: 2013Q1

REPORT INFORMATION
  Report Type: Report from Study
  Country: JP (occurrence: JP)
  Receive Date: 20120208
  Receipt Date: 20130315
  Transmission Date: 20140127
  Serious: Yes (Hospitalization, Other)
  Sender: FDA-Public Use
  Company Number: JP-ABBOTT-12P-087-0900200-00

PATIENT
  Age: 30 None
  Sex: Male
  Weight: 70 kg

DRUGS (10)
  1. HUMIRA [Suspect]
     Indication: CROHN^S DISEASE
     Route: 058
     Dates: start: 20101211, end: 20101211
  2. HUMIRA [Suspect]
     Dates: start: 20101225, end: 20101225
  3. HUMIRA [Suspect]
     Dates: start: 20110108, end: 20110108
  4. AZATHIOPRINE [Concomitant]
     Indication: CROHN^S DISEASE
     Route: 048
  5. MESALAZINE [Concomitant]
     Indication: CROHN^S DISEASE
     Route: 048
  6. ANTIBIOTICS-RESISTANT LACTIC ACID BACTERIAE [Concomitant]
     Indication: CROHN^S DISEASE
     Route: 048
  7. BROMAZEPAM [Concomitant]
     Indication: ANXIETY DISORDER
     Route: 048
  8. BROMAZEPAM [Concomitant]
     Indication: PROPHYLAXIS
  9. ETHYL LOFLAZEPATE [Concomitant]
     Indication: ANXIETY DISORDER
     Dosage: 4 MG/DAY
     Route: 048
  10. ETHYL LOFLAZEPATE [Concomitant]
     Indication: PROPHYLAXIS

REACTIONS (5)
  - Staphylococcus test positive [Unknown]
  - Pneumonia [Recovering/Resolving]
  - Folliculitis [Recovering/Resolving]
  - Asthma [Recovering/Resolving]
  - Fistula [Recovering/Resolving]
